FAERS Safety Report 9471272 (Version 2)
Quarter: 2014Q3

REPORT INFORMATION
  Report Type: Spontaneous
  Country: US (occurrence: US)
  Receive Date: 20130822
  Receipt Date: 20140825
  Transmission Date: 20150326
  Serious: Yes (Hospitalization)
  Sender: FDA-Public Use
  Company Number: US-009507513-1308USA010203

PATIENT
  Sex: Female
  Weight: 79.82 kg

DRUGS (1)
  1. NUVARING [Suspect]
     Active Substance: ETHINYL ESTRADIOL\ETONOGESTREL
     Indication: MENORRHAGIA
     Dosage: 1 RING X3 WKS THEN OUT X1 WK
     Route: 067
     Dates: start: 201106, end: 20110926

REACTIONS (9)
  - Vascular compression [Unknown]
  - Treatment failure [Unknown]
  - Deep vein thrombosis [Unknown]
  - Deep vein thrombosis [Unknown]
  - Venous stent insertion [Unknown]
  - Venous stenosis [Unknown]
  - Thromboembolectomy [Unknown]
  - Drug dose omission [Unknown]
  - Off label use [Unknown]

NARRATIVE: CASE EVENT DATE: 20110926
